FAERS Safety Report 23948021 (Version 1)
Quarter: 2024Q2

REPORT INFORMATION
  Report Type: Report from Study
  Country: US (occurrence: US)
  Receive Date: 20240607
  Receipt Date: 20240607
  Transmission Date: 20240716
  Serious: Yes (Other)
  Sender: FDA-Public Use
  Company Number: US-ABBVIE-5783824

PATIENT
  Age: 59 Year
  Sex: Male
  Weight: 68 kg

DRUGS (6)
  1. HUMIRA [Suspect]
     Active Substance: ADALIMUMAB
     Indication: Rheumatoid arthritis
     Dosage: FORM STRENGTH:40 MILLIGRAM
     Route: 058
     Dates: start: 2022
  2. HUMIRA [Suspect]
     Active Substance: ADALIMUMAB
     Dosage: FORM STRENGTH:40 MILLIGRAM
     Route: 058
     Dates: end: 20240115
  3. INSULIN NOS [Concomitant]
     Active Substance: INSULIN NOS
     Indication: Type 1 diabetes mellitus
  4. PREDNISONE [Concomitant]
     Active Substance: PREDNISONE
     Indication: Dermatitis atopic
  5. LIPITOR [Concomitant]
     Active Substance: ATORVASTATIN CALCIUM
     Indication: Blood triglycerides increased
  6. RITALIN [Concomitant]
     Active Substance: METHYLPHENIDATE HYDROCHLORIDE
     Indication: Attention deficit hyperactivity disorder

REACTIONS (14)
  - Systemic lupus erythematosus [Not Recovered/Not Resolved]
  - Viral infection [Recovered/Resolved]
  - Viral infection [Recovered/Resolved]
  - Emotional disorder [Unknown]
  - Viral infection [Recovered/Resolved]
  - Viral infection [Recovered/Resolved]
  - Skin papilloma [Recovered/Resolved]
  - Weight increased [Not Recovered/Not Resolved]
  - Dermatitis atopic [Recovered/Resolved]
  - Eczema [Recovered/Resolved]
  - Skin wrinkling [Recovered/Resolved]
  - Melanocytic naevus [Recovered/Resolved]
  - Insomnia [Recovered/Resolved]
  - Exercise lack of [Unknown]

NARRATIVE: CASE EVENT DATE: 20221115
